FAERS Safety Report 9517077 (Version 2)
Quarter: 2013Q3

REPORT INFORMATION
  Report Type: Spontaneous
  Country: US (occurrence: US)
  Receive Date: 20130911
  Receipt Date: 20130927
  Transmission Date: 20140515
  Serious: Yes (Other)
  Sender: FDA-Public Use
  Company Number: US-PFIZER INC-2013256832

PATIENT
  Age: 60 Year
  Sex: Female
  Weight: 62.13 kg

DRUGS (6)
  1. SUTENT [Suspect]
     Dosage: 50 MG, CYCLIC
     Dates: start: 20130812, end: 20130906
  2. MORPHINE ER [Concomitant]
     Dosage: 30 MG (EVERY 8 HOURS), 3X/DAY
  3. DEXAMETHASONE [Concomitant]
     Dosage: 4 MG, 1X/DAY
     Dates: end: 201309
  4. TYLENOL [Concomitant]
     Dosage: UNK
  5. PREDNISONE [Concomitant]
     Dosage: UNK
     Dates: end: 201309
  6. PREDNISONE [Concomitant]
     Dosage: UNK
     Dates: start: 201309

REACTIONS (9)
  - Haemorrhage [Unknown]
  - Oral discomfort [Unknown]
  - Glossodynia [Unknown]
  - Dysgeusia [Unknown]
  - Fatigue [Unknown]
  - Diarrhoea [Unknown]
  - Blood potassium decreased [Unknown]
  - Oral pain [Unknown]
  - Blister [Unknown]
